FAERS Safety Report 17302213 (Version 1)
Quarter: 2020Q1

REPORT INFORMATION
  Report Type: Report from Study
  Country: FR (occurrence: FR)
  Receive Date: 20200122
  Receipt Date: 20200122
  Transmission Date: 20200409
  Serious: Yes (Life-Threatening, Hospitalization)
  Sender: FDA-Public Use
  Company Number: FR-ASTRAZENECA-2020SE10176

PATIENT
  Sex: Female

DRUGS (1)
  1. QUETIAPINE. [Suspect]
     Active Substance: QUETIAPINE
     Dosage: PRESUMED INGESTED DOSE OF 3.0 G
     Route: 048

REACTIONS (3)
  - Toxicity to various agents [Unknown]
  - Altered state of consciousness [Unknown]
  - Overdose [Unknown]
